FAERS Safety Report 9692642 (Version 1)
Quarter: 2013Q4

REPORT INFORMATION
  Report Type: Spontaneous
  Country: FR (occurrence: FR)
  Receive Date: 20131118
  Receipt Date: 20131118
  Transmission Date: 20140711
  Serious: Yes (Other)
  Sender: FDA-Public Use
  Company Number: PHHY2013FR130631

PATIENT
  Age: 72 Year
  Sex: Male

DRUGS (6)
  1. STALEVO [Suspect]
     Indication: PARKINSON^S DISEASE
     Dosage: 100 MG, QID
     Route: 048
     Dates: start: 2009
  2. REQUIP [Concomitant]
     Indication: PARKINSON^S DISEASE
     Dosage: 24 MG, QD
     Route: 048
     Dates: start: 2005
  3. METFORMIN [Concomitant]
     Dosage: 1.7 G, QD
     Route: 048
     Dates: start: 2010
  4. VOLTARENE//DICLOFENAC SODIUM [Concomitant]
     Dosage: 100 MG, QD
     Route: 048
     Dates: start: 2010
  5. SINEMET [Concomitant]
     Indication: PARKINSON^S DISEASE
     Dosage: UNK UKN, UNK
     Dates: start: 2011
  6. MODOPAR [Concomitant]
     Dosage: 125 MG, UNK
     Dates: start: 201303

REACTIONS (4)
  - Psychomotor hyperactivity [Not Recovered/Not Resolved]
  - Dependence [Recovered/Resolved]
  - Impulse-control disorder [Not Recovered/Not Resolved]
  - Hypersexuality [Not Recovered/Not Resolved]
